FAERS Safety Report 5738839-2 (Version None)
Quarter: 2008Q2

REPORT INFORMATION
  Report Type: 
  Country: None (occurrence: None)
  Receive Date: 20080515
  Receipt Date: 20080421
  Transmission Date: 20081010
  Serious: No
  Sender: FDA-Public Use
  Company Number: A0721873A

PATIENT
  Age: 4 Year
  Sex: Female
  Weight: 18.2 kg

DRUGS (1)
  1. VERAMYST [Suspect]
     Dosage: 1SPR PER DAY
     Route: 045
     Dates: start: 20080321, end: 20080403

REACTIONS (1)
  - EPISTAXIS [None]
